FAERS Safety Report 7739546-7 (Version None)
Quarter: 2011Q3

REPORT INFORMATION
  Report Type: 
  Country: None (occurrence: None)
  Receive Date: 20110909
  Receipt Date: 20110907
  Transmission Date: 20111222
  Serious: Yes (Hospitalization)
  Sender: FDA-Public Use
  Company Number: IT-PFIZER INC-2011210661

PATIENT
  Age: 53 Year
  Sex: Female

DRUGS (3)
  1. DIAZEPAM [Suspect]
     Dosage: 30 DROPS DAILY
     Route: 048
     Dates: start: 20110831, end: 20110831
  2. HALCION [Suspect]
     Dosage: 1250 UG, SINGLE
     Route: 048
     Dates: start: 20110831, end: 20110831
  3. AMITRIPTYLINE HYDROCHLORIDE [Suspect]
     Dosage: 125 MG, SINGLE
     Route: 048
     Dates: start: 20110831, end: 20110831

REACTIONS (3)
  - BRADYPHRENIA [None]
  - SUICIDE ATTEMPT [None]
  - BRADYKINESIA [None]
